FAERS Safety Report 9063806 (Version 1)
Quarter: 2013Q1

REPORT INFORMATION
  Report Type: Spontaneous
  Country: FR (occurrence: FR)
  Receive Date: 20130213
  Receipt Date: 20130213
  Transmission Date: 20140127
  Serious: Yes (Hospitalization)
  Sender: FDA-Public Use
  Company Number: FR-PFIZER INC-2013025304

PATIENT
  Age: 3 Year
  Sex: Male
  Weight: 14 kg

DRUGS (7)
  1. VFEND [Suspect]
     Indication: ATYPICAL MYCOBACTERIAL INFECTION
     Dosage: 250 MG, 2X/DAY
     Route: 048
     Dates: start: 20120420, end: 20120824
  2. ANSATIPINE [Interacting]
     Indication: ATYPICAL MYCOBACTERIAL INFECTION
     Dosage: 150 MG, 1X/DAY
     Route: 048
     Dates: start: 20120420, end: 20120824
  3. ANSATIPINE [Interacting]
     Dosage: 150 MG, 1X/DAY
     Dates: start: 20120919, end: 20121212
  4. SPORANOX [Interacting]
     Dosage: 200 MG, 1X/DAY
     Route: 048
     Dates: start: 20120926, end: 20121111
  5. SPORANOX [Interacting]
     Dosage: 250 MG, 1X/DAY
     Route: 048
     Dates: start: 20121112, end: 20121212
  6. CIFLOX [Concomitant]
     Indication: ATYPICAL MYCOBACTERIAL INFECTION
     Dosage: 1 DF, 2X/DAY
     Route: 048
     Dates: start: 20120420, end: 20121212
  7. ETHAMBUTOL [Concomitant]
     Indication: ATYPICAL MYCOBACTERIAL INFECTION
     Dosage: 300 MG, 1X/DAY
     Route: 048
     Dates: start: 20120420, end: 20121112

REACTIONS (3)
  - Drug interaction [Recovered/Resolved]
  - Uveitis [Recovered/Resolved]
  - Mixed liver injury [Recovered/Resolved]
